FAERS Safety Report 21130825 (Version 1)
Quarter: 2022Q3

REPORT INFORMATION
  Report Type: Spontaneous
  Country: US (occurrence: None)
  Receive Date: 20220725
  Receipt Date: 20220725
  Transmission Date: 20221027
  Serious: No
  Sender: FDA-Public Use
  Company Number: None

PATIENT
  Sex: Female

DRUGS (1)
  1. SOFOSBUVIR\VELPATASVIR [Suspect]
     Active Substance: SOFOSBUVIR\VELPATASVIR
     Indication: Hepatitis C
     Dosage: 400-100 MG ONCE DAILY ORAL? ?
     Route: 048
     Dates: start: 20220722

REACTIONS (3)
  - Headache [None]
  - Pain in extremity [None]
  - Blood urine present [None]

NARRATIVE: CASE EVENT DATE: 20220722
